FAERS Safety Report 15920907 (Version 3)
Quarter: 2020Q3

REPORT INFORMATION
  Report Type: Spontaneous
  Country: JP (occurrence: JP)
  Receive Date: 20190205
  Receipt Date: 20200807
  Transmission Date: 20201102
  Serious: Yes (Other)
  Sender: FDA-Public Use
  Company Number: GXJP2019JP000505

PATIENT
  Age: 33 Year
  Sex: Female
  Weight: 56 kg

DRUGS (5)
  1. ISONIAZID. [Suspect]
     Active Substance: ISONIAZID
     Indication: PULMONARY TUBERCULOSIS
     Dosage: 3 DF, QD(AFTER BREAKFAST)
     Route: 048
  2. INSULIN [Suspect]
     Active Substance: INSULIN NOS
     Indication: GESTATIONAL DIABETES
     Route: 065
  3. RIFAMPICIN [Suspect]
     Active Substance: RIFAMPIN
     Indication: PULMONARY TUBERCULOSIS
     Dosage: 3 DF, QD  (BEFORE BREAKFAST)
     Route: 048
  4. PYRIDOXINE HYDROCHLORIDE. [Suspect]
     Active Substance: PYRIDOXINE HYDROCHLORIDE
     Indication: PULMONARY TUBERCULOSIS
     Dosage: 3 DF, QD (AFTER BREAKFAST)
     Route: 048
  5. ETHAMBUTOL [Suspect]
     Active Substance: ETHAMBUTOL HYDROCHLORIDE
     Indication: PULMONARY TUBERCULOSIS
     Dosage: 4 DF, QD (AFTER BREAKFAST)
     Route: 048

REACTIONS (3)
  - Cholestasis [Unknown]
  - Maternal exposure during pregnancy [Unknown]
  - Hepatic function abnormal [Recovering/Resolving]
